FAERS Safety Report 15826582 (Version 1)
Quarter: 2019Q1

REPORT INFORMATION
  Report Type: Spontaneous
  Country: US (occurrence: US)
  Receive Date: 20190115
  Receipt Date: 20190115
  Transmission Date: 20190417
  Serious: No
  Sender: FDA-Public Use
  Company Number: US-NEOS THERAPEUTICS, LP-2018NEO00136

PATIENT
  Age: 10 Year
  Sex: Male

DRUGS (1)
  1. COTEMPLA XR-ODT [Suspect]
     Active Substance: METHYLPHENIDATE

REACTIONS (3)
  - Mania [Unknown]
  - Priapism [Unknown]
  - Insomnia [Recovered/Resolved]
